FAERS Safety Report 5512452-4 (Version None)
Quarter: 2007Q4

REPORT INFORMATION
  Report Type: 
  Country: None (occurrence: None)
  Receive Date: 20071112
  Receipt Date: 20070116
  Transmission Date: 20080405
  Serious: No
  Sender: FDA-Public Use
  Company Number: A0635860A

PATIENT
  Age: 63 Year
  Sex: Female

DRUGS (4)
  1. AVANDAMET [Suspect]
     Dosage: 1TAB TWICE PER DAY
     Route: 048
     Dates: start: 20061204
  2. SINGULAIR [Concomitant]
  3. NORVASC [Concomitant]
  4. CALCIFORTE [Concomitant]

REACTIONS (1)
  - ALOPECIA [None]
